FAERS Safety Report 10071110 (Version 1)
Quarter: 2014Q2

REPORT INFORMATION
  Report Type: Report from Study
  Country: BR (occurrence: BR)
  Receive Date: 20140410
  Receipt Date: 20140410
  Transmission Date: 20141212
  Serious: Yes (Death, Other)
  Sender: FDA-Public Use
  Company Number: PHHY2014BR043691

PATIENT
  Sex: Female
  Weight: 70 kg

DRUGS (4)
  1. EXELON [Suspect]
     Indication: DEMENTIA ALZHEIMER^S TYPE
     Dosage: 1 DF, DAILY
     Dates: start: 201312, end: 201401
  2. CAPTOPRIL [Concomitant]
     Indication: BLOOD PRESSURE ABNORMAL
     Dosage: 3 DF, DAILY
  3. AMIODARONE [Concomitant]
     Indication: BLOOD PRESSURE ABNORMAL
     Dosage: 1 DF, DAILY
  4. CLONAZEPAM [Concomitant]
     Indication: SLEEP DISORDER
     Dosage: 1 DF, DAILY

REACTIONS (3)
  - Infarction [Fatal]
  - Cardiac murmur [Unknown]
  - Weight decreased [Unknown]
